FAERS Safety Report 9032254 (Version 1)
Quarter: 2013Q1

REPORT INFORMATION
  Report Type: Spontaneous
  Country: US (occurrence: US)
  Receive Date: 20130122
  Receipt Date: 20130122
  Transmission Date: 20140127
  Serious: No
  Sender: FDA-Public Use
  Company Number: US-009507513-1301USA008396

PATIENT
  Age: 20 Year
  Sex: Female

DRUGS (1)
  1. IMPLANON [Suspect]
     Indication: CONTRACEPTION
     Dosage: 63 MG PER 3 YEARS IMPLANT
     Route: 059
     Dates: start: 20120803, end: 20121219

REACTIONS (1)
  - Pregnancy with implant contraceptive [Unknown]
